FAERS Safety Report 11801271 (Version 1)
Quarter: 2015Q4

REPORT INFORMATION
  Report Type: Spontaneous
  Country: US (occurrence: US)
  Receive Date: 20151204
  Receipt Date: 20151204
  Transmission Date: 20160305
  Serious: No
  Sender: FDA-Public Use
  Company Number: US-PFIZER INC-2015382881

PATIENT
  Age: 82 Year
  Sex: Female

DRUGS (2)
  1. IBRANCE [Suspect]
     Active Substance: PALBOCICLIB
     Dosage: 125 MG, UNK
     Dates: start: 20150928, end: 20151102
  2. LETROZOLE. [Suspect]
     Active Substance: LETROZOLE
     Dosage: UNK

REACTIONS (12)
  - Fatigue [Unknown]
  - Dizziness [Unknown]
  - Headache [Unknown]
  - Alopecia [Unknown]
  - Pruritus [Unknown]
  - Erythema [Unknown]
  - Skin fissures [Unknown]
  - Epistaxis [Unknown]
  - Nausea [Unknown]
  - Red blood cell count decreased [Unknown]
  - White blood cell count decreased [Unknown]
  - Diarrhoea [Unknown]
